FAERS Safety Report 7735113-X (Version None)
Quarter: 2011Q3

REPORT INFORMATION
  Report Type: 
  Country: None (occurrence: None)
  Receive Date: 20110907
  Receipt Date: 20110803
  Transmission Date: 20111222
  Serious: Yes (Death, Hospitalization, Other)
  Sender: FDA-Public Use
  Company Number: CA-ASTRAZENECA-2011SE46404

PATIENT
  Age: 0 Day
  Sex: Male

DRUGS (2)
  1. EFFEXOR [Suspect]
     Indication: DEPRESSION
     Route: 064
  2. SEROQUEL [Suspect]
     Indication: BIPOLAR I DISORDER
     Dosage: BETWEEN 100 MG AND 150 MG DAILY
     Route: 064

REACTIONS (4)
  - SUDDEN INFANT DEATH SYNDROME [None]
  - NEONATAL RESPIRATORY DISTRESS SYNDROME [None]
  - IRRITABILITY [None]
  - FLOPPY INFANT [None]
